FAERS Safety Report 16249068 (Version 1)
Quarter: 2019Q2

REPORT INFORMATION
  Report Type: Spontaneous
  Country: FR (occurrence: FR)
  Receive Date: 20190429
  Receipt Date: 20190429
  Transmission Date: 20190711
  Serious: Yes (Hospitalization, Other)
  Sender: FDA-Public Use
  Company Number: FR-AUROBINDO-AUR-APL-2019-022179

PATIENT

DRUGS (2)
  1. TRAMADOL. [Suspect]
     Active Substance: TRAMADOL
     Indication: PAIN
     Dosage: 12 DOSAGE FORM, DAILY
     Route: 048
     Dates: start: 201704, end: 2018
  2. TRAMADOL. [Suspect]
     Active Substance: TRAMADOL
     Dosage: 3600 MILLIGRAM, IN TOTAL
     Route: 048
     Dates: start: 20180322, end: 20180322

REACTIONS (3)
  - Drug abuse [Recovered/Resolved]
  - Drug dependence [Recovering/Resolving]
  - Generalised tonic-clonic seizure [Recovered/Resolved]

NARRATIVE: CASE EVENT DATE: 2017
